FAERS Safety Report 8661256 (Version 3)
Quarter: 2013Q4

REPORT INFORMATION
  Report Type: Spontaneous
  Country: RU (occurrence: RU)
  Receive Date: 20120712
  Receipt Date: 20131105
  Transmission Date: 20140711
  Serious: Yes (Other)
  Sender: FDA-Public Use
  Company Number: RU-009507513-1206USA00745

PATIENT
  Sex: Female

DRUGS (10)
  1. ISENTRESS [Suspect]
     Dosage: 400 MG, BID, PER OS
     Route: 048
     Dates: start: 20100830
  2. COMBIVIR [Concomitant]
     Indication: HIV INFECTION
     Dosage: 1 DF, BID
     Route: 048
     Dates: start: 20090917
  3. KALETRA [Concomitant]
     Indication: HIV INFECTION
     Dosage: 2 DF, BID
     Route: 048
     Dates: start: 20090917
  4. FOLIC ACID [Concomitant]
     Indication: PREGNANCY
     Dosage: 1 DF, QID
     Route: 048
     Dates: start: 20120306, end: 20120316
  5. MAGNESIUM SULFATE [Concomitant]
     Indication: ABORTION THREATENED
     Dosage: UNK DROP BY DROP
     Route: 042
     Dates: start: 20120306, end: 20120306
  6. PAPAVERINE HYDROCHLORIDE [Concomitant]
     Indication: ABORTION THREATENED
     Dosage: 2 ML, UNK
     Route: 030
     Dates: start: 20120306, end: 20120306
  7. VITAMIN E ACETATE [Concomitant]
     Indication: ABORTION THREATENED
     Dosage: UNK, L DROP THREE TIMES PER DAY,
     Route: 048
     Dates: start: 20120306, end: 20120316
  8. VALERIAN [Concomitant]
     Indication: PREGNANCY
     Dosage: 2 DF, TID
     Route: 048
     Dates: start: 20120306, end: 20120316
  9. MAGNE B6 SOLUTION [Concomitant]
     Indication: ABORTION THREATENED
     Dosage: 1 DF, TID
     Dates: start: 20120306, end: 20120406
  10. DICYNONE [Concomitant]
     Indication: ABORTION THREATENED
     Dosage: UNK, BID, 12,5% 2ML
     Route: 030
     Dates: start: 20120306, end: 20120316

REACTIONS (3)
  - Abortion threatened [Unknown]
  - Premature separation of placenta [Unknown]
  - Exposure during pregnancy [Recovered/Resolved]
